FAERS Safety Report 21892493 (Version 2)
Quarter: 2023Q1

REPORT INFORMATION
  Report Type: Spontaneous
  Country: US (occurrence: US)
  Receive Date: 20230120
  Receipt Date: 20230302
  Transmission Date: 20230417
  Serious: Yes (Other)
  Sender: FDA-Public Use
  Company Number: US-BAYER-2023P003835

PATIENT
  Age: 20 Year
  Sex: Male

DRUGS (3)
  1. KOVALTRY [Suspect]
     Active Substance: ANTIHEMOPHILIC FACTOR, HUMAN RECOMBINANT
     Dosage: 2100 U, PRN
     Route: 042
  2. KOVALTRY [Suspect]
     Active Substance: ANTIHEMOPHILIC FACTOR, HUMAN RECOMBINANT
     Dosage: 1 DF, ONCE (TO TREAT THE BLEED)
     Route: 042
     Dates: start: 20230114, end: 20230114
  3. KOVALTRY [Suspect]
     Active Substance: ANTIHEMOPHILIC FACTOR, HUMAN RECOMBINANT
     Dosage: 1 DF, ONCE (TO TREAT THE INJURY AND CARTILAGE DISORDER)

REACTIONS (4)
  - Haemorrhage [Recovered/Resolved]
  - Chondropathy [None]
  - Limb injury [Recovered/Resolved]
  - Injury [None]

NARRATIVE: CASE EVENT DATE: 20230114
